FAERS Safety Report 24439457 (Version 4)
Quarter: 2025Q3

REPORT INFORMATION
  Report Type: Spontaneous
  Country: US (occurrence: US)
  Receive Date: 20241015
  Receipt Date: 20250923
  Transmission Date: 20251021
  Serious: Yes (Life-Threatening, Other)
  Sender: PFIZER
  Company Number: US-PFIZER INC-PV202400131885

PATIENT
  Age: 60 Year
  Sex: Male

DRUGS (16)
  1. FENTANYL CITRATE [Interacting]
     Active Substance: FENTANYL CITRATE
     Indication: Endotracheal intubation
     Route: 041
  2. FENTANYL CITRATE [Interacting]
     Active Substance: FENTANYL CITRATE
     Indication: Sedation
  3. MEPERIDINE HYDROCHLORIDE [Interacting]
     Active Substance: MEPERIDINE HYDROCHLORIDE
     Indication: Chills
  4. FLUCONAZOLE [Interacting]
     Active Substance: FLUCONAZOLE
     Indication: Fungal skin infection
  5. VENLAFAXINE [Interacting]
     Active Substance: VENLAFAXINE HYDROCHLORIDE
     Indication: Depression
  6. OXYCODONE [Interacting]
     Active Substance: OXYCODONE
  7. COBICISTAT [Interacting]
     Active Substance: COBICISTAT
     Indication: HIV infection
  8. DARUNAVIR [Concomitant]
     Active Substance: DARUNAVIR
     Indication: HIV infection
  9. EMTRICITABINE [Concomitant]
     Active Substance: EMTRICITABINE
     Indication: HIV infection
  10. TENOFOVIR ALAFENAMIDE [Concomitant]
     Active Substance: TENOFOVIR ALAFENAMIDE
     Indication: HIV infection
  11. OLANZAPINE [Concomitant]
     Active Substance: OLANZAPINE
  12. HYDROMORPHONE [Concomitant]
     Active Substance: HYDROMORPHONE
  13. ETOMIDATE [Concomitant]
     Active Substance: ETOMIDATE
     Indication: Sedation
  14. ROCURONIUM [Concomitant]
     Active Substance: ROCURONIUM BROMIDE
     Indication: Sedation
  15. VERSED [Concomitant]
     Active Substance: MIDAZOLAM HYDROCHLORIDE
     Indication: Sedation
  16. PROPOFOL [Concomitant]
     Active Substance: PROPOFOL
     Indication: Sedation
     Route: 041

REACTIONS (2)
  - Drug interaction [Unknown]
  - Serotonin syndrome [Recovering/Resolving]
